FAERS Safety Report 6182642-9 (Version None)
Quarter: 2009Q2

REPORT INFORMATION
  Report Type: 
  Country: None (occurrence: None)
  Receive Date: 20090505
  Receipt Date: 20090427
  Transmission Date: 20091009
  Serious: Yes (Other)
  Sender: FDA-Public Use
  Company Number: 2009SP009066

PATIENT
  Age: 86 Year
  Sex: Female

DRUGS (2)
  1. CELESTONE CRONODOSE (BETAMETHASONE SODIUM PHOSPHATE/ACETATE) (BETAMETH [Suspect]
     Indication: BENIGN FAMILIAL PEMPHIGUS
     Dosage: 6 MG; ; PARN
     Route: 051
     Dates: start: 20080129
  2. RELIF (NABUMETONE) (NABUMETONE) [Suspect]
     Indication: HIP FRACTURE
     Dosage: ; PO
     Route: 048
     Dates: start: 20090223

REACTIONS (3)
  - DRUG INTERACTION [None]
  - HALLUCINATION [None]
  - HIP FRACTURE [None]
